FAERS Safety Report 24124926 (Version 1)
Quarter: 2024Q3

REPORT INFORMATION
  Report Type: Report from Study
  Country: US (occurrence: None)
  Receive Date: 20240723
  Receipt Date: 20240723
  Transmission Date: 20241017
  Serious: Yes (Hospitalization)
  Sender: ASTRAZENECA
  Company Number: 2021A335887

PATIENT
  Sex: Male

DRUGS (2)
  1. FASENRA [Suspect]
     Active Substance: BENRALIZUMAB
     Indication: Asthma
     Route: 058
  2. CAYSTON [Concomitant]
     Active Substance: AZTREONAM
     Indication: Asthma
     Dosage: 75 MG/ML INH
     Route: 055

REACTIONS (1)
  - Cardiac infection [Not Recovered/Not Resolved]
